FAERS Safety Report 6407619-7 (Version None)
Quarter: 2009Q4

REPORT INFORMATION
  Report Type: 
  Country: None (occurrence: None)
  Receive Date: 20091020
  Receipt Date: 20091007
  Transmission Date: 20100525
  Serious: Yes (Disabling, Other)
  Sender: FDA-Public Use
  Company Number: PHEH2009US13274

PATIENT
  Sex: Female

DRUGS (8)
  1. RECLAST [Suspect]
     Dosage: UNK
     Dates: start: 20081201
  2. PROTONIX [Concomitant]
     Dosage: UNK
  3. TRAZODONE [Concomitant]
     Dosage: 100 MG, QD
  4. PAROXETINE [Concomitant]
     Dosage: 20 MG, QD
  5. VITAMINS [Concomitant]
     Dosage: UNK
  6. CALCIUM WITH VITAMIN D [Concomitant]
     Dosage: UNK
  7. ZOCOR [Concomitant]
     Dosage: 40 MG, QD
  8. KLONOPIN [Concomitant]
     Dosage: 2 MG, BID

REACTIONS (8)
  - ARTHRALGIA [None]
  - BEDRIDDEN [None]
  - DISABILITY [None]
  - FALL [None]
  - FEMUR FRACTURE [None]
  - INJURY [None]
  - MYALGIA [None]
  - OSTEONECROSIS [None]
